FAERS Safety Report 8042377-4 (Version None)
Quarter: 2012Q1

REPORT INFORMATION
  Report Type: 
  Country: None (occurrence: None)
  Receive Date: 20120112
  Receipt Date: 20120110
  Transmission Date: 20120608
  Serious: Yes (Hospitalization)
  Sender: FDA-Public Use
  Company Number: US-B.I. PHARMACEUTICALS,INC./RIDGEFIELD-2012-BP-00506BP

PATIENT
  Age: 82 Year
  Sex: Male

DRUGS (13)
  1. METFORMIN HCL [Concomitant]
     Indication: DIABETES MELLITUS
  2. ZAROXOLYN [Concomitant]
     Indication: CARDIAC FAILURE CONGESTIVE
  3. POTASSIUM CHLORIDE [Concomitant]
     Indication: VITAMIN SUPPLEMENTATION
  4. PRADAXA [Suspect]
     Indication: ATRIAL FIBRILLATION
  5. GLIPIZIDE [Concomitant]
     Indication: DIABETES MELLITUS
  6. LASIX [Concomitant]
     Indication: CARDIAC FAILURE CONGESTIVE
  7. TOPROL-XL [Concomitant]
     Indication: HYPERTENSION
  8. ZOCOR [Concomitant]
     Indication: BLOOD CHOLESTEROL INCREASED
  9. IMDUR [Concomitant]
     Indication: CARDIAC FAILURE CONGESTIVE
  10. HYTRIN [Concomitant]
     Indication: HYPERTENSION
  11. VASOTEC [Concomitant]
     Indication: HYPERTENSION
  12. XELODA [Concomitant]
     Indication: LUNG NEOPLASM MALIGNANT
  13. MAGNESIUM [Concomitant]
     Indication: VITAMIN SUPPLEMENTATION

REACTIONS (4)
  - HAEMOTHORAX [None]
  - HAEMATOMA [None]
  - FALL [None]
  - CONTUSION [None]
